FAERS Safety Report 16377283 (Version 1)
Quarter: 2019Q2

REPORT INFORMATION
  Report Type: Spontaneous
  Country: US (occurrence: US)
  Receive Date: 20190425
  Receipt Date: 20190425
  Transmission Date: 20190711
  Serious: Yes (Hospitalization)
  Sender: FDA-Public Use
  Company Number: None

PATIENT
  Age: 66 Year
  Sex: Male

DRUGS (1)
  1. AFINITOR [Suspect]
     Active Substance: EVEROLIMUS
     Indication: RENAL CANCER
     Route: 048
     Dates: start: 20190401, end: 20190412

REACTIONS (5)
  - Lung disorder [None]
  - Feeding disorder [None]
  - Stomatitis [None]
  - Gastric disorder [None]
  - Adverse drug reaction [None]

NARRATIVE: CASE EVENT DATE: 20190401
